FAERS Safety Report 5239883-4 (Version None)
Quarter: 2007Q1

REPORT INFORMATION
  Report Type: 
  Country: None (occurrence: None)
  Receive Date: 20070216
  Receipt Date: 20070206
  Transmission Date: 20070707
  Serious: Yes (Other)
  Sender: FDA-Public Use
  Company Number: KR-ABBOTT-07P-090-0358422-00

PATIENT
  Age: 46 Year
  Sex: Female

DRUGS (3)
  1. REMIFENTANIL [Suspect]
     Indication: POSTOPERATIVE ANALGESIA
     Route: 042
  2. CIMETIDINE HCL [Concomitant]
     Indication: DRUG USE FOR UNKNOWN INDICATION
     Route: 042
  3. FLUSH SOLUTION [Concomitant]
     Indication: DRUG USE FOR UNKNOWN INDICATION

REACTIONS (3)
  - APNOEA [None]
  - CYANOSIS [None]
  - RESPIRATORY DEPRESSION [None]
